FAERS Safety Report 8919428 (Version 1)
Quarter: 2012Q4

REPORT INFORMATION
  Report Type: Spontaneous
  Country: GB (occurrence: None)
  Receive Date: 20121114
  Receipt Date: 20121114
  Transmission Date: 20130627
  Serious: Yes (Other)
  Sender: FDA-Public Use
  Company Number: DSA_60782_2012

PATIENT
  Age: 53 Year
  Sex: Female

DRUGS (3)
  1. METRONIDAZOLE (METRONIDAZOLE) [Suspect]
     Indication: TOOTH INFECTION
     Dosage: (Df)
     Dates: start: 20121016, end: 20121017
  2. PAROXETINE [Concomitant]
  3. AMOXICILLIN [Concomitant]

REACTIONS (3)
  - Abdominal distension [None]
  - Malaise [None]
  - Pain [None]
